FAERS Safety Report 13300239 (Version 3)
Quarter: 2017Q4

REPORT INFORMATION
  Report Type: Report from Study
  Country: US (occurrence: US)
  Receive Date: 20170307
  Receipt Date: 20171005
  Transmission Date: 20180320
  Serious: Yes (Hospitalization, Other)
  Sender: FDA-Public Use
  Company Number: US-UCBSA-2017008284

PATIENT
  Age: 55 Year
  Sex: Female
  Weight: 77 kg

DRUGS (10)
  1. VENTOLIN HFA [Concomitant]
     Active Substance: ALBUTEROL SULFATE
     Indication: ASTHMA
     Dosage: 90 MG, AS NEEDED (PRN)
     Dates: start: 20130916
  2. LEVOTHYROXINE. [Concomitant]
     Active Substance: LEVOTHYROXINE
     Indication: HYPOTHYROIDISM
     Dosage: 112 ?G, ONCE DAILY (QD)
     Route: 048
     Dates: start: 20141201
  3. PROAIR HFA [Concomitant]
     Active Substance: ALBUTEROL SULFATE
     Indication: ASTHMA
     Dosage: 90 MG, AS NEEDED (PRN)
     Dates: start: 20150211
  4. WARFARIN [Concomitant]
     Active Substance: WARFARIN
     Indication: TACHYCARDIA
     Dosage: 2.5 MG, ONCE DAILY (QD)
     Route: 048
     Dates: start: 20160830, end: 20170218
  5. OXYCODONE [Concomitant]
     Active Substance: OXYCODONE
     Indication: TIBIA FRACTURE
     Dosage: 1 DF, 6X/DAY
     Route: 048
     Dates: start: 20161229, end: 20170201
  6. PLACEBO [Suspect]
     Active Substance: UNSPECIFIED INGREDIENT
     Indication: PSORIASIS
     Dosage: UNK
     Dates: start: 20150326, end: 20150715
  7. ALBUTEROL SULFATE. [Concomitant]
     Active Substance: ALBUTEROL SULFATE
     Indication: ASTHMA
     Dosage: 2.5 ?G, AS NEEDED (PRN)
     Dates: start: 20150211
  8. AMLODIPINE [Concomitant]
     Active Substance: AMLODIPINE BESYLATE
     Indication: HYPERTENSION
     Dosage: 5 MG, ONCE DAILY (QD)
     Route: 048
     Dates: start: 20140601
  9. CERTOLIZUMAB PEGOL [Suspect]
     Active Substance: CERTOLIZUMAB PEGOL
     Indication: PSORIASIS
     Dosage: 200 MG, EV 2 WEEKS(QOW)
     Route: 058
     Dates: start: 20150716
  10. DILTIAZEM. [Concomitant]
     Active Substance: DILTIAZEM
     Indication: ATRIAL FIBRILLATION
     Dosage: 120 MG, ONCE DAILY (QD)
     Route: 048
     Dates: start: 20160822

REACTIONS (1)
  - Rectal haemorrhage [Recovered/Resolved]

NARRATIVE: CASE EVENT DATE: 20170218
